FAERS Safety Report 16218477 (Version 3)
Quarter: 2019Q2

REPORT INFORMATION
  Report Type: Spontaneous
  Country: JP (occurrence: JP)
  Receive Date: 20190419
  Receipt Date: 20190419
  Transmission Date: 20190711
  Serious: Yes (Death, Other)
  Sender: FDA-Public Use
  Company Number: PHHY2019JP089630

PATIENT
  Age: 61 Year
  Sex: Female

DRUGS (19)
  1. METHOTREXATE. [Suspect]
     Active Substance: METHOTREXATE
     Indication: HIGH-GRADE B-CELL LYMPHOMA
     Route: 065
  2. CISPLATIN. [Suspect]
     Active Substance: CISPLATIN
     Indication: HIGH-GRADE B-CELL LYMPHOMA
     Route: 065
  3. GRANULOCYTE COLONY STIMULATING FACTOR [Concomitant]
     Active Substance: GRANULOCYTE COLONY-STIMULATING FACTOR NOS
     Dosage: 600 UG, QD
     Route: 065
  4. ETOPOSIDE. [Suspect]
     Active Substance: ETOPOSIDE
     Indication: HIGH-GRADE B-CELL LYMPHOMA
     Route: 065
  5. GEMCITABINE [Suspect]
     Active Substance: GEMCITABINE\GEMCITABINE HYDROCHLORIDE
     Indication: HIGH-GRADE B-CELL LYMPHOMA
     Route: 065
  6. CYCLOPHOSPHAMIDE. [Suspect]
     Active Substance: CYCLOPHOSPHAMIDE
     Indication: HIGH-GRADE B-CELL LYMPHOMA
     Route: 065
  7. PLERIXAFOR [Concomitant]
     Active Substance: PLERIXAFOR
     Indication: PRODUCT USED FOR UNKNOWN INDICATION
     Route: 065
  8. PREDNISONE. [Suspect]
     Active Substance: PREDNISONE
     Indication: HIGH-GRADE B-CELL LYMPHOMA
     Route: 065
  9. CARBOPLATIN. [Suspect]
     Active Substance: CARBOPLATIN
     Indication: HIGH-GRADE B-CELL LYMPHOMA
     Route: 065
  10. CYTARABINE. [Suspect]
     Active Substance: CYTARABINE
     Indication: HIGH-GRADE B-CELL LYMPHOMA
     Route: 065
  11. GRANULOCYTE COLONY STIMULATING FACTOR [Concomitant]
     Active Substance: GRANULOCYTE COLONY-STIMULATING FACTOR NOS
     Dosage: 600 UG, QD
     Route: 065
  12. IFOSFAMIDE. [Suspect]
     Active Substance: IFOSFAMIDE
     Indication: HIGH-GRADE B-CELL LYMPHOMA
     Route: 065
  13. DEXAMETHASONE. [Suspect]
     Active Substance: DEXAMETHASONE
     Indication: HIGH-GRADE B-CELL LYMPHOMA
     Route: 065
  14. RANIMUSTINE [Suspect]
     Active Substance: RANIMUSTINE
     Indication: HIGH-GRADE B-CELL LYMPHOMA
     Route: 065
  15. GRANULOCYTE COLONY STIMULATING FACTOR [Concomitant]
     Active Substance: GRANULOCYTE COLONY-STIMULATING FACTOR NOS
     Indication: PRODUCT USED FOR UNKNOWN INDICATION
     Dosage: 600 UG, QD
     Route: 065
  16. DOXORUBICIN [Suspect]
     Active Substance: DOXORUBICIN
     Indication: HIGH-GRADE B-CELL LYMPHOMA
     Route: 065
  17. RITUXIMAB. [Suspect]
     Active Substance: RITUXIMAB
     Indication: HIGH-GRADE B-CELL LYMPHOMA
     Route: 065
  18. PREDNISOLONE. [Suspect]
     Active Substance: PREDNISOLONE
     Indication: HIGH-GRADE B-CELL LYMPHOMA
     Route: 065
  19. VINCRISTINE [Suspect]
     Active Substance: VINCRISTINE
     Indication: HIGH-GRADE B-CELL LYMPHOMA
     Route: 065

REACTIONS (7)
  - Drug ineffective [Unknown]
  - B-cell lymphoma recurrent [Unknown]
  - High-grade B-cell lymphoma [Fatal]
  - Malignant neoplasm progression [Fatal]
  - Bone marrow infiltration [Unknown]
  - Skin lesion [Unknown]
  - Product use in unapproved indication [Unknown]
